FAERS Safety Report 17570650 (Version 3)
Quarter: 2020Q1

REPORT INFORMATION
  Report Type: Spontaneous
  Country: KR (occurrence: KR)
  Receive Date: 20200323
  Receipt Date: 20200330
  Transmission Date: 20200409
  Serious: Yes (Hospitalization)
  Sender: FDA-Public Use
  Company Number: KR-ABBVIE-20P-090-3330584-00

PATIENT
  Age: 8 Year
  Sex: Female

DRUGS (1)
  1. LEUPLIN [Suspect]
     Active Substance: LEUPROLIDE ACETATE
     Indication: PRECOCIOUS PUBERTY
     Dosage: 0.66 MILLILITER, Q4WEEKS
     Route: 058
     Dates: start: 20190528

REACTIONS (1)
  - Injection site abscess [Unknown]

NARRATIVE: CASE EVENT DATE: 20200302
